FAERS Safety Report 9440183 (Version 1)
Quarter: 2013Q3

REPORT INFORMATION
  Report Type: Spontaneous
  Country: JP (occurrence: JP)
  Receive Date: 20130805
  Receipt Date: 20130805
  Transmission Date: 20140515
  Serious: Yes (Other)
  Sender: FDA-Public Use
  Company Number: PHHY2013JP083137

PATIENT
  Age: 84 Year
  Sex: Female

DRUGS (1)
  1. DIOVAN [Suspect]
     Dosage: 40 MG, QHS (DAILY BEFORE GOING TO BED)
     Route: 048

REACTIONS (2)
  - Hepatic cancer [Unknown]
  - Incorrect dose administered [Unknown]
